FAERS Safety Report 16754748 (Version 1)
Quarter: 2019Q3

REPORT INFORMATION
  Report Type: Spontaneous
  Country: US (occurrence: US)
  Receive Date: 20190711
  Receipt Date: 20190711
  Transmission Date: 20191005
  Serious: No
  Sender: FDA-Public Use
  Company Number: None

PATIENT
  Age: 59 Year
  Sex: Female

DRUGS (1)
  1. STELARA [Suspect]
     Active Substance: USTEKINUMAB
     Indication: PSORIASIS
     Dosage: ?          OTHER FREQUENCY:EVERY 12  WEEKS;?
     Route: 058
     Dates: start: 20171204

REACTIONS (2)
  - Therapeutic product effect decreased [None]
  - Psoriasis [None]

NARRATIVE: CASE EVENT DATE: 20190602
